FAERS Safety Report 16351606 (Version 1)
Quarter: 2019Q3

REPORT INFORMATION
  Report Type: Spontaneous
  Country: GB (occurrence: GB)
  Receive Date: 20190523
  Receipt Date: 20190523
  Transmission Date: 20191004
  Serious: Yes (Other)
  Sender: FDA-Public Use
  Company Number: None

PATIENT
  Age: 7 Year
  Sex: Male

DRUGS (3)
  1. CLENIL [Concomitant]
     Active Substance: BECLOMETHASONE DIPROPIONATE
  2. SALBUTAMOL [Concomitant]
     Active Substance: ALBUTEROL
  3. MONTELUKAST [Suspect]
     Active Substance: MONTELUKAST SODIUM
     Indication: ASTHMA
     Dosage: ?          QUANTITY:1 TABLET(S);?
     Route: 048
     Dates: end: 20190512

REACTIONS (14)
  - Loss of personal independence in daily activities [None]
  - Irritability [None]
  - Pruritus generalised [None]
  - Anxiety [None]
  - Aggression [None]
  - Depressed mood [None]
  - Anger [None]
  - Autophobia [None]
  - Psychomotor hyperactivity [None]
  - Morbid thoughts [None]
  - Tremor [None]
  - Paranoia [None]
  - Nightmare [None]
  - Obsessive-compulsive disorder [None]

NARRATIVE: CASE EVENT DATE: 20190512
